FAERS Safety Report 6348472-X (Version None)
Quarter: 2009Q3

REPORT INFORMATION
  Report Type: 
  Country: None (occurrence: None)
  Receive Date: 20090911
  Receipt Date: 20080125
  Transmission Date: 20100115
  Serious: Yes (Hospitalization, Other)
  Sender: FDA-Public Use
  Company Number: US-ASTRAZENECA-2006UW23313

PATIENT
  Age: 35 Year
  Sex: Female
  Weight: 90.7 kg

DRUGS (13)
  1. SEROQUEL [Suspect]
     Indication: DEPRESSION
     Route: 048
     Dates: start: 20010101
  2. SEROQUEL [Suspect]
     Indication: ANXIETY
     Route: 048
     Dates: start: 20010101
  3. SEROQUEL [Suspect]
     Route: 048
     Dates: start: 20030319
  4. SEROQUEL [Suspect]
     Route: 048
     Dates: start: 20030319
  5. NEVIRAPINE [Concomitant]
     Dates: start: 19990518
  6. GLUCOPHAGE [Concomitant]
     Dosage: 500 MG- 1000 MG
     Route: 048
     Dates: start: 20030721
  7. LANTUS [Concomitant]
     Dates: start: 20030901
  8. NORVASC [Concomitant]
     Dates: start: 20030519
  9. NAPROXEN [Concomitant]
     Dates: start: 20030311
  10. COMBIVIR [Concomitant]
     Dates: start: 20000215
  11. EPIVIR [Concomitant]
     Dates: start: 20030901
  12. PAXIL [Concomitant]
     Route: 048
     Dates: start: 20011119
  13. DIFLUCAN [Concomitant]

REACTIONS (13)
  - CHEST DISCOMFORT [None]
  - COUGH [None]
  - DIABETES MELLITUS [None]
  - DIABETES MELLITUS INADEQUATE CONTROL [None]
  - DIABETIC KETOACIDOSIS [None]
  - DIABETIC NEUROPATHY [None]
  - DYSPHAGIA [None]
  - DYSPNOEA [None]
  - MULTIPLE INJURIES [None]
  - OROPHARYNGEAL PAIN [None]
  - PYREXIA [None]
  - TYPE 1 DIABETES MELLITUS [None]
  - TYPE 2 DIABETES MELLITUS [None]
